FAERS Safety Report 4480588-5 (Version None)
Quarter: 2004Q4

REPORT INFORMATION
  Report Type: 
  Country: None (occurrence: None)
  Receive Date: 20041019
  Receipt Date: 20041005
  Transmission Date: 20050328
  Serious: Yes (Death)
  Sender: FDA-Public Use
  Company Number: S04-USA-05838-01

PATIENT
  Age: 85 Year
  Sex: Male

DRUGS (6)
  1. NAMENDA [Suspect]
     Indication: DEMENTIA
     Dosage: 5 MG QD PO
     Route: 048
     Dates: start: 20040727, end: 20040802
  2. NAMENDA [Suspect]
     Indication: DEMENTIA
     Dosage: 10 MG QD PO
     Route: 048
     Dates: start: 20040803, end: 20040809
  3. NAMENDA [Suspect]
     Indication: DEMENTIA
     Dosage: 15 MG QD PO
     Route: 048
     Dates: start: 20040810, end: 20040813
  4. DIOVAN HCT [Suspect]
     Indication: HYPERTENSION
  5. ARICEPT [Concomitant]
  6. PLAVIX [Concomitant]

REACTIONS (27)
  - ABDOMINAL DISTENSION [None]
  - AORTIC ANEURYSM [None]
  - CARDIO-RESPIRATORY ARREST [None]
  - CHOLANGITIS [None]
  - COAGULOPATHY [None]
  - CONFUSIONAL STATE [None]
  - DECREASED APPETITE [None]
  - DEHYDRATION [None]
  - EATING DISORDER [None]
  - ELECTROCARDIOGRAM POOR R-WAVE PROGRESSION [None]
  - ELECTROCARDIOGRAM QRS COMPLEX ABNORMAL [None]
  - HEPATIC FAILURE [None]
  - HEPATIC INFARCTION [None]
  - HEPATOTOXICITY [None]
  - HYPOTENSION [None]
  - HYPOVOLAEMIA [None]
  - LEUKOCYTOSIS [None]
  - MENTAL STATUS CHANGES [None]
  - MULTI-ORGAN FAILURE [None]
  - PNEUMONIA [None]
  - RENAL FAILURE ACUTE [None]
  - SCAR [None]
  - SEPTIC SHOCK [None]
  - SHOCK [None]
  - THROMBOCYTOPENIA [None]
  - URINARY TRACT INFECTION [None]
  - UROSEPSIS [None]
